FAERS Safety Report 24406842 (Version 1)
Quarter: 2024Q4

REPORT INFORMATION
  Report Type: Spontaneous
  Country: US (occurrence: US)
  Receive Date: 20241007
  Receipt Date: 20241007
  Transmission Date: 20250114
  Serious: Yes (Other)
  Sender: ADMA BIOLOGICS
  Company Number: US-ADMA BIOLOGICS INC.-US-2024ADM000125

PATIENT
  Age: 72 Year
  Sex: Male

DRUGS (1)
  1. HUMAN IMMUNOGLOBULIN G [Suspect]
     Active Substance: HUMAN IMMUNOGLOBULIN G
     Indication: Viraemia
     Dosage: UNK, UNK
     Route: 042

REACTIONS (5)
  - Chronic kidney disease [Unknown]
  - Bronchiolitis obliterans syndrome [Unknown]
  - Complications of transplanted lung [Unknown]
  - Drug intolerance [Unknown]
  - Off label use [Unknown]
